FAERS Safety Report 7429894-2 (Version None)
Quarter: 2011Q2

REPORT INFORMATION
  Report Type: 
  Country: None (occurrence: None)
  Receive Date: 20110419
  Receipt Date: 20110419
  Transmission Date: 20111010
  Serious: Yes (Other)
  Sender: FDA-Public Use
  Company Number: None

PATIENT
  Age: 28 Year
  Sex: Female
  Weight: 136.0791 kg

DRUGS (1)
  1. TOPAMAX [Suspect]
     Indication: BENIGN INTRACRANIAL HYPERTENSION
     Dosage: 1 PILL ONCE NIGHTLY PO
     Route: 048
     Dates: start: 20110210, end: 20110315

REACTIONS (5)
  - FEELING ABNORMAL [None]
  - STARING [None]
  - FATIGUE [None]
  - COGNITIVE DISORDER [None]
  - IMPAIRED DRIVING ABILITY [None]
